FAERS Safety Report 5125946-0 (Version None)
Quarter: 2006Q3

REPORT INFORMATION
  Report Type: 
  Country: None (occurrence: None)
  Receive Date: 20060818
  Receipt Date: 20060726
  Transmission Date: 20061208
  Serious: Yes (Other)
  Sender: FDA-Public Use
  Company Number: SPV1-2006-00296

PATIENT
  Sex: Female
  Weight: 79.5 kg

DRUGS (8)
  1. FOSRENOL [Suspect]
     Indication: HYPERPHOSPHATAEMIA
     Dosage: 3X/DAY;TID, ORAL
     Route: 048
     Dates: start: 20060703, end: 20060721
  2. RENAGEL /0149901/(SEVELAMER) [Concomitant]
  3. SELOKEN /00376902/(METOPROLOL TARTRATE) [Concomitant]
  4. ARANESP [Concomitant]
  5. CALCUEX /00027702/(HEPARIN CALCIUM) [Concomitant]
  6. MULTVIT /02281101/(ASCORBIC ACID, CYANOCOBALAMIN, ERGOCALCIFEROL, FLUO [Concomitant]
  7. FLUOXIBENE (FLUOXETINE HYDROCHLORIDE) [Concomitant]
  8. ZOCORD (SIMVASTATIN) [Concomitant]

REACTIONS (1)
  - NAUSEA [None]
